FAERS Safety Report 20991904 (Version 1)
Quarter: 2022Q2

REPORT INFORMATION
  Report Type: Spontaneous
  Country: US (occurrence: None)
  Receive Date: 20220620
  Receipt Date: 20220620
  Transmission Date: 20220721
  Serious: No
  Sender: FDA-Public Use
  Company Number: None

PATIENT
  Age: 77 Year
  Sex: Female
  Weight: 55 kg

DRUGS (1)
  1. ELIQUIS [Suspect]
     Active Substance: APIXABAN
     Indication: Hepatic vein thrombosis

REACTIONS (2)
  - Aphthous ulcer [None]
  - Mucocutaneous candidiasis [None]

NARRATIVE: CASE EVENT DATE: 20220620
